FAERS Safety Report 20344993 (Version 1)
Quarter: 2022Q1

REPORT INFORMATION
  Report Type: Spontaneous
  Country: US (occurrence: None)
  Receive Date: 20220116
  Receipt Date: 20220116
  Transmission Date: 20220423
  Serious: Yes (unspecified)
  Sender: FDA-Public Use
  Company Number: None

PATIENT
  Age: 26 Year
  Sex: Female
  Weight: 80.55 kg

DRUGS (2)
  1. HUMIRA [Suspect]
     Active Substance: ADALIMUMAB
     Indication: Hidradenitis
     Dosage: OTHER QUANTITY : 2 INJECTION(S);?OTHER FREQUENCY : 1 TIME A WEEK;?
     Route: 058
     Dates: start: 20220106, end: 20220115
  2. IBUPROFEN [Concomitant]
     Active Substance: IBUPROFEN

REACTIONS (9)
  - Nausea [None]
  - Dizziness [None]
  - Abdominal pain upper [None]
  - Diarrhoea [None]
  - Pyrexia [None]
  - Arthralgia [None]
  - Migraine [None]
  - Decreased appetite [None]
  - Illness [None]

NARRATIVE: CASE EVENT DATE: 20220106
